FAERS Safety Report 7670415-7 (Version None)
Quarter: 2011Q3

REPORT INFORMATION
  Report Type: 
  Country: None (occurrence: None)
  Receive Date: 20110809
  Receipt Date: 20110728
  Transmission Date: 20111222
  Serious: No
  Sender: FDA-Public Use
  Company Number: US-BIOGENIDEC-2011BI028424

PATIENT
  Age: 45 Year
  Sex: Female

DRUGS (3)
  1. TYSABRI [Suspect]
     Indication: MULTIPLE SCLEROSIS
     Route: 042
     Dates: start: 20110613
  2. IV IRON [Concomitant]
     Indication: BLOOD IRON DECREASED
     Dates: start: 20110601
  3. VITAMIN D [Concomitant]
     Indication: VITAMIN D DECREASED
     Dates: start: 20110601

REACTIONS (6)
  - HEADACHE [None]
  - SINUSITIS [None]
  - ARTHRALGIA [None]
  - SENSATION OF PRESSURE [None]
  - PYREXIA [None]
  - FATIGUE [None]
